FAERS Safety Report 16698287 (Version 1)
Quarter: 2019Q3

REPORT INFORMATION
  Report Type: Spontaneous
  Country: US (occurrence: US)
  Receive Date: 20190813
  Receipt Date: 20190813
  Transmission Date: 20191004
  Serious: No
  Sender: FDA-Public Use
  Company Number: US-TEVA-2019-US-1089260

PATIENT
  Age: 68 Year
  Sex: Female

DRUGS (2)
  1. FAMOTIDINE TEVA [Suspect]
     Active Substance: FAMOTIDINE
     Indication: MASTOCYTOSIS
     Route: 065
     Dates: start: 201907
  2. FAMOTIDINE TEVA [Suspect]
     Active Substance: FAMOTIDINE
     Indication: HISTAMINE LEVEL INCREASED

REACTIONS (2)
  - Thinking abnormal [Unknown]
  - Sedation [Unknown]

NARRATIVE: CASE EVENT DATE: 201907
